FAERS Safety Report 6944924-X (Version None)
Quarter: 2010Q3

REPORT INFORMATION
  Report Type: 
  Country: None (occurrence: None)
  Receive Date: 20100824
  Receipt Date: 20100811
  Transmission Date: 20110219
  Serious: Yes (Death, Hospitalization)
  Sender: FDA-Public Use
  Company Number: 2010MA001653

PATIENT
  Age: 69 Year
  Sex: Female
  Weight: 62 kg

DRUGS (3)
  1. ACYCLOVIR [Suspect]
     Indication: ENCEPHALITIS HERPES
     Dosage: 600 MG; TID; IV
     Route: 042
  2. MYCOPHENOLATE MOFETIL [Concomitant]
  3. PREDNISOLONE [Concomitant]

REACTIONS (16)
  - ATRIAL FIBRILLATION [None]
  - COMA [None]
  - CONTINUOUS HAEMODIAFILTRATION [None]
  - DRUG CLEARANCE DECREASED [None]
  - DRUG LEVEL INCREASED [None]
  - ELECTROENCEPHALOGRAM ABNORMAL [None]
  - HYPOTENSION [None]
  - INTESTINAL DILATATION [None]
  - INTESTINAL ISCHAEMIA [None]
  - LARGE INTESTINE PERFORATION [None]
  - NEUROTOXICITY [None]
  - RECTAL HAEMORRHAGE [None]
  - RENAL IMPAIRMENT [None]
  - RESPIRATORY FAILURE [None]
  - SEPSIS [None]
  - WOUND HAEMORRHAGE [None]
